FAERS Safety Report 10671999 (Version 2)
Quarter: 2015Q1

REPORT INFORMATION
  Report Type: Spontaneous
  Country: US (occurrence: US)
  Receive Date: 20141223
  Receipt Date: 20150120
  Transmission Date: 20150720
  Serious: Yes (Other)
  Sender: FDA-Public Use
  Company Number: US-PFIZER INC-2014352320

PATIENT
  Age: 54 Year
  Sex: Female

DRUGS (1)
  1. ESTRING [Suspect]
     Active Substance: ESTRADIOL
     Dosage: 2 MG, ONCE EVERY 3 MONTHS
     Dates: start: 201408

REACTIONS (2)
  - Vaginal haemorrhage [Recovered/Resolved]
  - Vaginal odour [Recovered/Resolved]
